FAERS Safety Report 19443677 (Version 1)
Quarter: 2021Q2

REPORT INFORMATION
  Report Type: Spontaneous
  Country: FR (occurrence: FR)
  Receive Date: 20210621
  Receipt Date: 20210621
  Transmission Date: 20210717
  Serious: Yes (Other)
  Sender: FDA-Public Use
  Company Number: FR-PFIZER INC-2021681827

PATIENT
  Age: 60 Year
  Sex: Female

DRUGS (2)
  1. EFFEXOR [Suspect]
     Active Substance: VENLAFAXINE HYDROCHLORIDE
     Indication: GENERALISED ANXIETY DISORDER
     Dosage: 37.5 MG, 1X/DAY
     Route: 048
     Dates: start: 20201201, end: 20210301
  2. STRESAM [Suspect]
     Active Substance: ETIFOXINE
     Indication: GENERALISED ANXIETY DISORDER
     Dosage: 3 DF, 1X/DAY
     Route: 048
     Dates: start: 20201201, end: 20210301

REACTIONS (1)
  - Hepatocellular injury [Recovered/Resolved]

NARRATIVE: CASE EVENT DATE: 20210301
